FAERS Safety Report 9156571 (Version 1)
Quarter: 2013Q1

REPORT INFORMATION
  Report Type: Spontaneous
  Country: US (occurrence: None)
  Receive Date: 20130208
  Receipt Date: 20130208
  Transmission Date: 20140127
  Serious: Yes (Hospitalization)
  Sender: FDA-Public Use
  Company Number: IPC201301-000033

PATIENT
  Age: 24 Year
  Sex: Male

DRUGS (1)
  1. PROPRANOLOL HYDROCHLORIDE [Suspect]

REACTIONS (12)
  - Psychotic disorder [None]
  - Tachycardia [None]
  - Hypertension [None]
  - Hyperhidrosis [None]
  - Mydriasis [None]
  - Agitation [None]
  - Mental status changes [None]
  - White blood cell count increased [None]
  - Blood creatine phosphokinase increased [None]
  - Blood bicarbonate decreased [None]
  - Disorientation [None]
  - Blood lactic acid increased [None]
